FAERS Safety Report 6174216-0 (Version None)
Quarter: 2009Q2

REPORT INFORMATION
  Report Type: 
  Country: None (occurrence: None)
  Receive Date: 20090430
  Receipt Date: 20080324
  Transmission Date: 20091009
  Serious: No
  Sender: FDA-Public Use
  Company Number: US-ASTRAZENECA-2008UW05911

PATIENT
  Age: 54 Year
  Sex: Male
  Weight: 78 kg

DRUGS (5)
  1. NEXIUM [Suspect]
     Indication: GASTROOESOPHAGEAL REFLUX DISEASE
     Route: 048
     Dates: start: 20080301
  2. NEXIUM [Suspect]
     Indication: MASS
     Route: 048
     Dates: start: 20080301
  3. TRAMADOL HCL [Concomitant]
  4. CLONAZEPAM [Concomitant]
  5. LORAZEPAM [Concomitant]

REACTIONS (6)
  - ABDOMINAL PAIN UPPER [None]
  - CANDIDIASIS [None]
  - CONSTIPATION [None]
  - DIZZINESS [None]
  - URINE COLOUR ABNORMAL [None]
  - VISION BLURRED [None]
